FAERS Safety Report 8121461-0 (Version None)
Quarter: 2012Q1

REPORT INFORMATION
  Report Type: 
  Country: None (occurrence: None)
  Receive Date: 20120208
  Receipt Date: 20120203
  Transmission Date: 20120608
  Serious: No
  Sender: FDA-Public Use
  Company Number: US-PFIZER INC-2002067267

PATIENT
  Sex: Male
  Weight: 91 kg

DRUGS (4)
  1. SIMVASTATIN [Concomitant]
  2. WARFARIN SODIUM [Concomitant]
  3. TIKOSYN [Suspect]
     Dosage: UNK
     Route: 048
     Dates: start: 20110825
  4. TIKOSYN [Suspect]
     Dosage: 250 UG, 2X/DAY
     Route: 048
     Dates: start: 20021101, end: 20021101

REACTIONS (1)
  - ATRIAL FIBRILLATION [None]
